FAERS Safety Report 4677956-5 (Version None)
Quarter: 2005Q1

REPORT INFORMATION
  Report Type: 
  Country: None (occurrence: None)
  Receive Date: 20050311
  Receipt Date: 20050311
  Transmission Date: 20050727
  Serious: Yes (Other)
  Sender: FDA-Public Use
  Company Number: None

PATIENT
  Sex: Female
  Weight: 90.7194 kg

DRUGS (1)
  1. ENALAPRIL 3 MG [Suspect]
     Indication: HYPERTENSION
     Dosage: 3 MG DAILY PO
     Route: 048

REACTIONS (2)
  - BLOOD PRESSURE INCREASED [None]
  - FLUSHING [None]
